FAERS Safety Report 8940424 (Version 2)
Quarter: 2012Q4

REPORT INFORMATION
  Report Type: 
  Country: US (occurrence: US)
  Receive Date: 20121203
  Receipt Date: 20121212
  Transmission Date: 20130627
  Serious: Yes (Hospitalization)
  Sender: FDA-Public Use
  Company Number: US-BAXTER-2012BAX025464

PATIENT
  Age: 67 Year
  Sex: Male

DRUGS (2)
  1. DIANEAL LOW CALCIUM [Suspect]
     Indication: PERITONEAL DIALYSIS
     Route: 033
  2. DIANEAL LOW CALCIUM (ULTRABAG) [Suspect]
     Indication: PERITONEAL DIALYSIS
     Route: 033

REACTIONS (6)
  - Wound [Recovered/Resolved]
  - Impaired healing [Recovered/Resolved]
  - Peritoneal dialysis complication [Recovered/Resolved]
  - Muscle injury [Recovered/Resolved]
  - Haematoma [Recovered/Resolved]
  - Fall [Recovered/Resolved]
